FAERS Safety Report 7023456 (Version 3)
Quarter: 2019Q1

REPORT INFORMATION
  Report Type: Report from Study
  Country: FR (occurrence: FR)
  Receive Date: 20090615
  Receipt Date: 20190225
  Transmission Date: 20190418
  Serious: Yes (Death, Life-Threatening, Hospitalization)
  Sender: FDA-Public Use
  Company Number: FR-PFIZER INC-2008007121

PATIENT
  Age: 63 Year
  Sex: Female
  Weight: 40 kg

DRUGS (6)
  1. PHENOXYMETHYLPENICILLIN [Concomitant]
     Active Substance: PENICILLIN V
     Route: 048
     Dates: start: 200703, end: 20080121
  2. HEXETIDINE [Concomitant]
     Active Substance: HEXETIDINE
     Route: 048
     Dates: start: 20071123, end: 20080121
  3. SUNITINIB MALATE. [Suspect]
     Active Substance: SUNITINIB MALATE
     Indication: MALIGNANT NEOPLASM OF ISLETS OF LANGERHANS
     Dosage: 12.5 MG, 3X/DAY (3 CAPSULES OF 12.5 MG ONCE A DAY)
     Route: 048
     Dates: start: 20071115, end: 20080121
  4. ESOMEPRAZOLE. [Concomitant]
     Active Substance: ESOMEPRAZOLE MAGNESIUM
     Route: 048
     Dates: start: 2005, end: 20080121
  5. SERETIDE [Concomitant]
     Active Substance: FLUTICASONE PROPIONATE\SALMETEROL XINAFOATE
     Route: 055
     Dates: start: 1997, end: 20080121
  6. TRAMADOL. [Concomitant]
     Active Substance: TRAMADOL
     Route: 048
     Dates: start: 200708, end: 20080121

REACTIONS (5)
  - Hyperkalaemia [Unknown]
  - Ventricular arrhythmia [Unknown]
  - Cardiac failure [Fatal]
  - Hepatic function abnormal [Unknown]
  - Renal failure [Unknown]

NARRATIVE: CASE EVENT DATE: 20080121
